FAERS Safety Report 24616441 (Version 1)
Quarter: 2024Q4

REPORT INFORMATION
  Report Type: Spontaneous
  Country: TR (occurrence: TR)
  Receive Date: 20241114
  Receipt Date: 20241114
  Transmission Date: 20250115
  Serious: Yes (Other)
  Sender: AMGEN
  Company Number: TR-AMGEN-TURSP2024220704

PATIENT

DRUGS (6)
  1. BEVACIZUMAB [Suspect]
     Active Substance: BEVACIZUMAB
     Indication: Tractional retinal detachment
     Dosage: 1.25 MILLIGRAM/0.05 ML
  2. MOXIFLOXACIN [Concomitant]
     Active Substance: MOXIFLOXACIN
     Dosage: 0.5 PERCENT
  3. PREDNISOLONE ACETATE [Concomitant]
     Active Substance: PREDNISOLONE ACETATE
     Dosage: 1 PERCENT
  4. TROPICAMIDE [Concomitant]
     Active Substance: TROPICAMIDE
     Dosage: 0.5 PERCENT
  5. DIMETHICONE [Concomitant]
     Active Substance: DIMETHICONE
  6. PERFLUTREN [Concomitant]
     Active Substance: PERFLUTREN

REACTIONS (3)
  - Tractional retinal detachment [Unknown]
  - Proliferative vitreoretinopathy [Unknown]
  - Off label use [Unknown]
